FAERS Safety Report 4829930-3 (Version None)
Quarter: 2005Q4

REPORT INFORMATION
  Report Type: 
  Country: None (occurrence: None)
  Receive Date: 20051115
  Receipt Date: 20051101
  Transmission Date: 20060501
  Serious: Yes (Other)
  Sender: FDA-Public Use
  Company Number: 2005RR-01121

PATIENT
  Sex: Male

DRUGS (1)
  1. FLUOXETINE [Suspect]
     Indication: STRESS
     Dosage: 20 MG, QD,

REACTIONS (1)
  - PANCREATITIS [None]
